FAERS Safety Report 7765034-8 (Version None)
Quarter: 2011Q3

REPORT INFORMATION
  Report Type: 
  Country: None (occurrence: None)
  Receive Date: 20110921
  Receipt Date: 20110918
  Transmission Date: 20111222
  Serious: No
  Sender: FDA-Public Use
  Company Number: US-PFIZER INC-2011221131

PATIENT
  Sex: Female

DRUGS (5)
  1. ADVIL LIQUI-GELS [Suspect]
     Indication: BACK PAIN
  2. GLUCOSAMINE [Concomitant]
     Indication: ARTHRALGIA
     Dosage: UNK
  3. ADVIL LIQUI-GELS [Suspect]
     Indication: PAIN
     Dosage: UNK, 1X/DAY
     Route: 048
     Dates: start: 20110828
  4. ADVIL LIQUI-GELS [Suspect]
     Indication: MYALGIA
  5. VITAMIN D [Concomitant]
     Dosage: 1000 IU, UNK

REACTIONS (9)
  - RASH PAPULAR [None]
  - PAIN IN EXTREMITY [None]
  - MYALGIA [None]
  - ARTHRALGIA [None]
  - MUSCLE DISORDER [None]
  - FORMICATION [None]
  - PRURITUS [None]
  - MUSCLE STRAIN [None]
  - PARAESTHESIA [None]
